FAERS Safety Report 9112801 (Version 1)
Quarter: 2013Q1

REPORT INFORMATION
  Report Type: Spontaneous
  Country: AT (occurrence: AT)
  Receive Date: 20130211
  Receipt Date: 20130211
  Transmission Date: 20140127
  Serious: Yes (Hospitalization)
  Sender: FDA-Public Use
  Company Number: AT-ELI_LILLY_AND_COMPANY-AT201302000241

PATIENT
  Sex: Male
  Weight: 86 kg

DRUGS (3)
  1. EFIENT [Suspect]
     Indication: ACUTE CORONARY SYNDROME
     Dosage: 60 MG, SINGLE
     Route: 048
     Dates: start: 20110208
  2. EFIENT [Suspect]
     Dosage: 10 MG, QD
     Route: 048
     Dates: end: 20120215
  3. ACETYLSALICYLIC ACID [Concomitant]

REACTIONS (1)
  - Coronary artery restenosis [Recovering/Resolving]
